FAERS Safety Report 23509210 (Version 1)
Quarter: 2024Q1

REPORT INFORMATION
  Report Type: Spontaneous
  Country: US (occurrence: None)
  Receive Date: 20240209
  Receipt Date: 20240209
  Transmission Date: 20240410
  Serious: Yes (unspecified)
  Sender: FDA-Public Use
  Company Number: None

PATIENT
  Age: 69 Year
  Sex: Female
  Weight: 54.9 kg

DRUGS (7)
  1. MINOXIDIL [Suspect]
     Active Substance: MINOXIDIL
     Indication: Alopecia
     Dosage: OTHER QUANTITY : .5 TABLET(S);?FREQUENCY : DAILY;?
     Route: 048
     Dates: start: 20231208, end: 20240121
  2. OMEPRAZOLE [Concomitant]
     Active Substance: OMEPRAZOLE
  3. PROLIA [Concomitant]
     Active Substance: DENOSUMAB
  4. VITAMIN D [Concomitant]
     Active Substance: VITAMIN D NOS
  5. VITAMIN C [Concomitant]
     Active Substance: ASCORBIC ACID
  6. ZINC [Concomitant]
     Active Substance: PYRITHIONE ZINC\ZINC\ZINC CHLORIDE
  7. Feoferosol [Concomitant]

REACTIONS (4)
  - Peripheral swelling [None]
  - Peripheral swelling [None]
  - Peripheral swelling [None]
  - Swelling face [None]

NARRATIVE: CASE EVENT DATE: 20240205
